FAERS Safety Report 8294615-0 (Version None)
Quarter: 2012Q2

REPORT INFORMATION
  Report Type: 
  Country: None (occurrence: None)
  Receive Date: 20120418
  Receipt Date: 20120405
  Transmission Date: 20120825
  Serious: Yes (Other)
  Sender: FDA-Public Use
  Company Number: US-BAYER-2012-033374

PATIENT
  Age: 68 Year
  Sex: Male
  Weight: 66 kg

DRUGS (1)
  1. ASPIRIN [Suspect]
     Indication: ISCHAEMIC HEART DISEASE PROPHYLAXIS
     Dosage: UNK UNK, ONCE
     Route: 048
     Dates: start: 20120403, end: 20120404

REACTIONS (6)
  - HAEMOPTYSIS [None]
  - THROAT TIGHTNESS [None]
  - OROPHARYNGEAL PAIN [None]
  - PHARYNGEAL HAEMORRHAGE [None]
  - PHARYNGEAL OEDEMA [None]
  - THROAT IRRITATION [None]
